FAERS Safety Report 7719814-5 (Version None)
Quarter: 2011Q3

REPORT INFORMATION
  Report Type: 
  Country: None (occurrence: None)
  Receive Date: 20110831
  Receipt Date: 20110823
  Transmission Date: 20111222
  Serious: No
  Sender: FDA-Public Use
  Company Number: US-BIOGENIDEC-2011BI022242

PATIENT
  Sex: Female

DRUGS (2)
  1. TYSABRI [Suspect]
     Route: 042
  2. TYSABRI [Suspect]
     Indication: MULTIPLE SCLEROSIS
     Route: 042
     Dates: start: 20080410, end: 20100204

REACTIONS (9)
  - FATIGUE [None]
  - SKIN ODOUR ABNORMAL [None]
  - JOINT STIFFNESS [None]
  - FEELING HOT [None]
  - VAGINAL INFECTION [None]
  - CYSTITIS [None]
  - ASTHMA [None]
  - ARTHRALGIA [None]
  - DYSPNOEA [None]
